FAERS Safety Report 16021899 (Version 1)
Quarter: 2019Q2

REPORT INFORMATION
  Report Type: Spontaneous
  Country: US (occurrence: US)
  Receive Date: 20190301
  Receipt Date: 20190301
  Transmission Date: 20190711
  Serious: Yes (Other)
  Sender: FDA-Public Use
  Company Number: None

PATIENT
  Age: 51 Year
  Sex: Female
  Weight: 76.05 kg

DRUGS (16)
  1. HYDROCODONE [Concomitant]
     Active Substance: HYDROCODONE
  2. IRON [Concomitant]
     Active Substance: IRON
  3. VITAMIN A [Concomitant]
     Active Substance: VITAMIN A
  4. VITAMIN D3 [Concomitant]
     Active Substance: CHOLECALCIFEROL
  5. CALCIUM CITRATE [Concomitant]
     Active Substance: CALCIUM CITRATE
  6. VITAMIN E [Concomitant]
     Active Substance: .ALPHA.-TOCOPHEROL
  7. OXTELLAR XR [Suspect]
     Active Substance: OXCARBAZEPINE
     Indication: NEURALGIA
     Route: 048
     Dates: start: 20190212, end: 20190220
  8. MYDAYIS [Concomitant]
     Active Substance: AMPHETAMINE ASPARTATE\AMPHETAMINE SULFATE\DEXTROAMPHETAMINE SACCHARATE\DEXTROAMPHETAMINE SULFATE
  9. DESLORATADINE. [Concomitant]
     Active Substance: DESLORATADINE
  10. MULTIVITAMIN [Concomitant]
     Active Substance: VITAMINS
  11. TRINTELLIX [Concomitant]
     Active Substance: VORTIOXETINE HYDROBROMIDE
  12. MAGNESIUM [Concomitant]
     Active Substance: MAGNESIUM
  13. ELAVIL [Concomitant]
     Active Substance: AMITRIPTYLINE HYDROCHLORIDE
  14. RABEPRAZOLE [Concomitant]
     Active Substance: RABEPRAZOLE
  15. VITAMIN K [Concomitant]
     Active Substance: PHYTONADIONE
  16. LYRICA [Concomitant]
     Active Substance: PREGABALIN

REACTIONS (3)
  - Vision blurred [None]
  - Cataract [None]
  - Eye oedema [None]

NARRATIVE: CASE EVENT DATE: 20190214
